FAERS Safety Report 18693322 (Version 1)
Quarter: 2021Q1

REPORT INFORMATION
  Report Type: Spontaneous
  Country: US (occurrence: US)
  Receive Date: 20210104
  Receipt Date: 20210104
  Transmission Date: 20210419
  Serious: No
  Sender: FDA-Public Use
  Company Number: US-SA-2020SA373999

PATIENT

DRUGS (1)
  1. DUPIXENT [Suspect]
     Active Substance: DUPILUMAB
     Indication: CYSTIC FIBROSIS
     Dosage: UNK

REACTIONS (4)
  - Aphonia [Unknown]
  - Product use in unapproved indication [Unknown]
  - Skin exfoliation [Unknown]
  - Treatment failure [Unknown]

NARRATIVE: CASE EVENT DATE: 20201030
